FAERS Safety Report 17871856 (Version 2)
Quarter: 2020Q2

REPORT INFORMATION
  Report Type: Spontaneous
  Country: CZ (occurrence: CZ)
  Receive Date: 20200608
  Receipt Date: 20200616
  Transmission Date: 20200714
  Serious: Yes (Other)
  Sender: FDA-Public Use
  Company Number: CZ-ROCHE-2615711

PATIENT
  Age: 71 Year
  Sex: Female

DRUGS (5)
  1. PACLITAXEL. [Suspect]
     Active Substance: PACLITAXEL
     Indication: OVARIAN CANCER
     Dosage: 80 MG/M2 ON DAY 1, 8, 15 AND 22
     Route: 042
     Dates: start: 2018, end: 2018
  2. NEURITOGEN [Suspect]
     Active Substance: DIETARY SUPPLEMENT\HERBALS
     Indication: NEUROPATHY PERIPHERAL
     Dosage: 1-0-1
     Route: 065
  3. BEVACIZUMAB. [Suspect]
     Active Substance: BEVACIZUMAB
     Indication: OVARIAN CANCER
     Dosage: 10 MG/KG
     Route: 065
  4. GABAPENTIN. [Suspect]
     Active Substance: GABAPENTIN
     Indication: NEUROPATHY PERIPHERAL
     Dosage: 300 TABLETS 1-1-1
     Route: 048
     Dates: start: 2018, end: 2018
  5. INSULIN [Concomitant]
     Active Substance: INSULIN NOS
     Indication: TYPE 2 DIABETES MELLITUS
     Dosage: UNK
     Route: 065

REACTIONS (5)
  - Dysstasia [Unknown]
  - Neuropathy peripheral [Unknown]
  - Disease progression [Unknown]
  - Drug intolerance [Unknown]
  - Condition aggravated [Unknown]

NARRATIVE: CASE EVENT DATE: 2018
